FAERS Safety Report 24996280 (Version 1)
Quarter: 2025Q1

REPORT INFORMATION
  Report Type: Spontaneous
  Country: JP (occurrence: JP)
  Receive Date: 20250221
  Receipt Date: 20250221
  Transmission Date: 20250409
  Serious: Yes (Death)
  Sender: MALLINCKRODT
  Company Number: JP-MALLINCKRODT-MNK202500517

PATIENT
  Age: 74 Year
  Sex: Female

DRUGS (1)
  1. NITRIC OXIDE [Suspect]
     Active Substance: NITRIC OXIDE
     Indication: Pulmonary hypertension
     Route: 055
     Dates: start: 20241231, end: 20250110

REACTIONS (5)
  - Sepsis [Fatal]
  - Disease progression [Fatal]
  - Off label use [Unknown]
  - Pneumonia influenzal [None]
  - Disease complication [None]

NARRATIVE: CASE EVENT DATE: 20241231
